FAERS Safety Report 23980017 (Version 2)
Quarter: 2024Q2

REPORT INFORMATION
  Report Type: Report from Study
  Country: DE (occurrence: DE)
  Receive Date: 20240617
  Receipt Date: 20240622
  Transmission Date: 20240716
  Serious: Yes (Death, Congenital Anomaly)
  Sender: FDA-Public Use
  Company Number: DE-ABBVIE-5803377

PATIENT

DRUGS (1)
  1. SKYRIZI [Suspect]
     Active Substance: RISANKIZUMAB-RZAA
     Indication: Maternal exposure timing unspecified
     Route: 064

REACTIONS (2)
  - Congenital musculoskeletal disorder [Fatal]
  - Foetal exposure during pregnancy [Unknown]
